FAERS Safety Report 11403650 (Version 1)
Quarter: 2015Q3

REPORT INFORMATION
  Report Type: Report from Study
  Country: JP (occurrence: JP)
  Receive Date: 20150821
  Receipt Date: 20150821
  Transmission Date: 20151125
  Serious: Yes (Death, Other)
  Sender: FDA-Public Use
  Company Number: JP-SUN PHARMACEUTICAL INDUSTRIES LTD-2015R1-101884

PATIENT
  Sex: Male

DRUGS (3)
  1. 5-FLUOROURACIL [Suspect]
     Active Substance: FLUOROURACIL
     Indication: OESOPHAGEAL CARCINOMA
     Dosage: 750 MG/M2 ON DAYS 1-5 EVERY 3 WEEKS
     Route: 065
  2. CISPLATIN. [Suspect]
     Active Substance: CISPLATIN
     Indication: OESOPHAGEAL CARCINOMA
     Dosage: 75 MG/M2 ON DAY 1 EVERY 3 WEEKS
     Route: 042
  3. DOCETAXEL. [Suspect]
     Active Substance: DOCETAXEL
     Indication: OESOPHAGEAL CARCINOMA
     Dosage: 75 MG/M2 ON DAY 1 EVERY 3 WEEK
     Route: 042

REACTIONS (1)
  - Disease recurrence [Fatal]
